FAERS Safety Report 8292363-4 (Version None)
Quarter: 2012Q2

REPORT INFORMATION
  Report Type: 
  Country: None (occurrence: None)
  Receive Date: 20120417
  Receipt Date: 20120124
  Transmission Date: 20120825
  Serious: No
  Sender: FDA-Public Use
  Company Number: US-BAUSCH-2012BL000512

PATIENT
  Age: 44 Year
  Sex: Female

DRUGS (2)
  1. FLUNISOLIDE [Suspect]
     Indication: HYPERSENSITIVITY
     Route: 045
     Dates: start: 20120113, end: 20120117
  2. FLUNISOLIDE [Suspect]
     Indication: SINUS DISORDER
     Route: 045
     Dates: start: 20120113, end: 20120117

REACTIONS (3)
  - AGEUSIA [None]
  - NASAL DISCOMFORT [None]
  - ANOSMIA [None]
